FAERS Safety Report 8211169-5 (Version None)
Quarter: 2012Q1

REPORT INFORMATION
  Report Type: 
  Country: None (occurrence: None)
  Receive Date: 20120315
  Receipt Date: 20120305
  Transmission Date: 20120608
  Serious: Yes (Hospitalization, Disabling)
  Sender: FDA-Public Use
  Company Number: FI-JNJFOC-20120302750

PATIENT
  Sex: Female

DRUGS (2)
  1. REMICADE [Suspect]
     Indication: MUSCULOSKELETAL PAIN
     Route: 042
  2. REMICADE [Suspect]
     Indication: PULMONARY FIBROSIS
     Route: 042

REACTIONS (1)
  - MYCOBACTERIAL INFECTION [None]
